FAERS Safety Report 21620036 (Version 1)
Quarter: 2022Q4

REPORT INFORMATION
  Report Type: Report from Study
  Country: US (occurrence: US)
  Receive Date: 20221121
  Receipt Date: 20221121
  Transmission Date: 20230113
  Serious: No
  Sender: FDA-Public Use
  Company Number: US-ABBVIE-4174013

PATIENT
  Sex: Female

DRUGS (2)
  1. SKYRIZI [Suspect]
     Active Substance: RISANKIZUMAB-RZAA
     Indication: Psoriasis
     Dosage: FORM STRENGTH: 150 MILLIGRAM, WEEK 0
     Route: 058
     Dates: start: 20221012
  2. SKYRIZI [Suspect]
     Active Substance: RISANKIZUMAB-RZAA
     Dosage: WEEK 4, FORM STRENGTH: 150 MILLIGRAM AND THERE AFTER EVERY 12 WEEKS
     Route: 058

REACTIONS (5)
  - Dyspnoea [Unknown]
  - Limb discomfort [Unknown]
  - Headache [Unknown]
  - Psoriasis [Unknown]
  - Pain in extremity [Unknown]
